FAERS Safety Report 7166498-3 (Version None)
Quarter: 2010Q4

REPORT INFORMATION
  Report Type: 
  Country: None (occurrence: None)
  Receive Date: 20101216
  Receipt Date: 20101208
  Transmission Date: 20110411
  Serious: Yes (Other)
  Sender: FDA-Public Use
  Company Number: IN-BAXTER-2010BH029958

PATIENT

DRUGS (2)
  1. LACTATED RINGER'S [Suspect]
     Indication: ELECTROLYTE IMBALANCE
     Route: 042
     Dates: start: 20101206
  2. DEXTROSE 5% AND SODIUM CHLORIDE 0.9% IN PLASTIC CONTAINER [Suspect]
     Indication: ELECTROLYTE IMBALANCE
     Route: 042
     Dates: start: 20101206

REACTIONS (1)
  - CHILLS [None]
